FAERS Safety Report 8364231-0 (Version None)
Quarter: 2012Q2

REPORT INFORMATION
  Report Type: 
  Country: None (occurrence: None)
  Receive Date: 20120516
  Receipt Date: 20120514
  Transmission Date: 20120825
  Serious: Yes (Hospitalization, Other)
  Sender: FDA-Public Use
  Company Number: PHHO2012TW006506

PATIENT
  Sex: Female
  Weight: 52.8 kg

DRUGS (9)
  1. ESTAZOLAM [Concomitant]
  2. TRAMADOL HYDROCHLORIDE [Concomitant]
  3. VALGANCICLOVIR [Concomitant]
  4. DEXAMETHASONE [Suspect]
     Dosage: UNK
  5. LBH589 [Suspect]
     Indication: MULTIPLE MYELOMA
     Dosage: 10 MG, UNK
     Route: 048
     Dates: start: 20111018, end: 20120414
  6. VELCADE [Suspect]
     Dosage: 1.5 MG, UNK
     Dates: start: 20111018, end: 20120410
  7. LBH589 [Suspect]
     Dosage: 10 MG, UNK
     Route: 048
  8. DEXAMETHASONE [Suspect]
     Indication: MULTIPLE MYELOMA
     Dosage: 20 MG, QD
     Route: 048
     Dates: start: 20111018, end: 20120414
  9. VELCADE [Suspect]
     Dosage: UNK

REACTIONS (2)
  - HEPATITIS B [None]
  - ESCHERICHIA URINARY TRACT INFECTION [None]
